FAERS Safety Report 6210269-9 (Version None)
Quarter: 2009Q2

REPORT INFORMATION
  Report Type: 
  Country: None (occurrence: None)
  Receive Date: 20090601
  Receipt Date: 20090521
  Transmission Date: 20091009
  Serious: Yes (Hospitalization, Other)
  Sender: FDA-Public Use
  Company Number: GB-AMGEN-UK348062

PATIENT
  Sex: Male

DRUGS (6)
  1. PANITUMUMAB [Suspect]
     Indication: GASTRIC CANCER
     Route: 065
     Dates: start: 20080709
  2. EPIRUBICIN [Suspect]
     Route: 065
     Dates: start: 20080709
  3. OXALIPLATIN [Suspect]
     Route: 065
     Dates: start: 20080709
  4. CAPECITABINE [Suspect]
     Route: 065
     Dates: start: 20080709
  5. METOCLOPRAMIDE [Concomitant]
     Route: 065
  6. PARACETAMOL [Concomitant]
     Route: 065

REACTIONS (3)
  - ARRHYTHMIA SUPRAVENTRICULAR [None]
  - INFECTION [None]
  - NODAL ARRHYTHMIA [None]
